FAERS Safety Report 4410677-2 (Version None)
Quarter: 2004Q3

REPORT INFORMATION
  Report Type: 
  Country: None (occurrence: None)
  Receive Date: 20040726
  Receipt Date: 20040706
  Transmission Date: 20050211
  Serious: Yes (Death)
  Sender: FDA-Public Use
  Company Number: B0339149A

PATIENT
  Age: 53 Year
  Sex: Male

DRUGS (2)
  1. EPIVIR [Suspect]
     Indication: HEPATITIS B VIRUS
     Dates: start: 20010501
  2. ACARBOSE [Concomitant]

REACTIONS (6)
  - DISEASE RECURRENCE [None]
  - FATIGUE [None]
  - HEPATIC ATROPHY [None]
  - HEPATIC FAILURE [None]
  - HEPATITIS B [None]
  - REFUSAL OF TREATMENT BY PATIENT [None]
